FAERS Safety Report 17657649 (Version 1)
Quarter: 2020Q2

REPORT INFORMATION
  Report Type: Spontaneous
  Country: IT (occurrence: IT)
  Receive Date: 20200411
  Receipt Date: 20200411
  Transmission Date: 20200713
  Serious: Yes (Hospitalization)
  Sender: FDA-Public Use
  Company Number: IT-SA-2020SA092871

PATIENT
  Age: 68 Year
  Sex: Male
  Weight: 56 kg

DRUGS (3)
  1. IRINOTECAN HYDROCHLORIDE TRIHYDRATE [IRINOTECAN HYDROCHLORIDE] [Concomitant]
     Active Substance: IRINOTECAN HYDROCHLORIDE
     Indication: PANCREATIC NEOPLASM
     Dosage: 239 MG, QCY
     Route: 042
     Dates: start: 20200330, end: 20200330
  2. OXALIPLATIN. [Suspect]
     Active Substance: OXALIPLATIN
     Indication: PANCREATIC NEOPLASM
     Dosage: 135 MG, QCY
     Route: 042
     Dates: start: 20200330, end: 20200330
  3. FLUOROURACIL. [Concomitant]
     Active Substance: FLUOROURACIL
     Indication: PANCREATIC NEOPLASM
     Route: 042
     Dates: start: 20200330, end: 20200330

REACTIONS (3)
  - Nasal dryness [Recovering/Resolving]
  - Paraesthesia [Recovering/Resolving]
  - Speech disorder [Recovering/Resolving]

NARRATIVE: CASE EVENT DATE: 20200330
